FAERS Safety Report 5216187-7 (Version None)
Quarter: 2006Q4

REPORT INFORMATION
  Report Type: 
  Country: None (occurrence: None)
  Receive Date: 20061122
  Receipt Date: 20060918
  Transmission Date: 20070319
  Serious: Yes (Other)
  Sender: FDA-Public Use
  Company Number: 2006112930

PATIENT
  Age: 41 Year
  Sex: Female
  Weight: 44.4525 kg

DRUGS (3)
  1. LIPITOR [Suspect]
     Indication: BLOOD CHOLESTEROL INCREASED
     Dosage: 10MG (10 MG, EVERY OTHER DAY), ORAL
     Route: 048
  2. MULTIVITAMIN [Concomitant]
  3. CALCIUM (CALCIUM) [Concomitant]

REACTIONS (1)
  - HYPERTENSION [None]
